FAERS Safety Report 9678405 (Version 2)
Quarter: 2013Q4

REPORT INFORMATION
  Report Type: Report from Study
  Country: US (occurrence: US)
  Receive Date: 20131108
  Receipt Date: 20131108
  Transmission Date: 20140711
  Serious: Yes (Death)
  Sender: FDA-Public Use
  Company Number: US-DENDREON CORPORATION-2013PROUSA02923

PATIENT
  Age: 86 Year
  Sex: Male
  Weight: 72.56 kg

DRUGS (12)
  1. SIPULEUCEL-T [Suspect]
     Indication: PROSTATE CANCER METASTATIC
     Dosage: 250 ML, SINGLE
     Route: 042
     Dates: start: 20130228, end: 20130228
  2. SIPULEUCEL-T [Suspect]
     Dosage: 250 ML, SINGLE
     Route: 042
     Dates: start: 20130315, end: 20130315
  3. SIPULEUCEL-T [Suspect]
     Dosage: 250 ML, SINGLE
     Route: 042
     Dates: start: 20130322, end: 20130322
  4. AVODART [Concomitant]
     Indication: BENIGN PROSTATIC HYPERPLASIA
     Dosage: 0.5 MG, UNK
  5. CASODEX [Concomitant]
     Indication: PROSTATE CANCER
     Dosage: 50 MG, UNK
  6. FLUTAMIDE [Concomitant]
     Indication: PROSTATE CANCER
     Dosage: 125 MG, UNK
  7. CALCIUM [Concomitant]
     Indication: ROUTINE HEALTH MAINTENANCE
     Dosage: 1 TABLETS, UNK
  8. PULMICORT [Concomitant]
     Indication: CHRONIC OBSTRUCTIVE PULMONARY DISEASE
     Dosage: 1 UNK, UNK
  9. TOPROL XL [Concomitant]
     Indication: HYPERTENSION
     Dosage: 100 MG, UNK
  10. ISOSORBIDE DINITRATE [Concomitant]
     Indication: HYPERTENSION
     Dosage: 30 MG, UNK
  11. WARFARIN SODIUM [Concomitant]
     Indication: HEART RATE IRREGULAR
     Dosage: 2.5 MG, UNK
  12. TIAZAC [Concomitant]
     Indication: HYPERTENSION
     Dosage: 120 MG, UNK

REACTIONS (1)
  - Disease progression [Fatal]
